FAERS Safety Report 5834833-1 (Version None)
Quarter: 2008Q3

REPORT INFORMATION
  Report Type: 
  Country: None (occurrence: None)
  Receive Date: 20080805
  Receipt Date: 20080725
  Transmission Date: 20090109
  Serious: Yes (Hospitalization)
  Sender: FDA-Public Use
  Company Number: US-ELI_LILLY_AND_COMPANY-US200807001447

PATIENT
  Sex: Female
  Weight: 134.24 kg

DRUGS (17)
  1. HUMULIN N [Suspect]
     Dosage: 90 U, EACH MORNING
  2. HUMULIN N [Suspect]
     Dosage: 70 U, EACH EVENING
  3. HUMULIN N [Suspect]
     Dosage: 100 U, 2/D
  4. LYRICA [Concomitant]
     Indication: FIBROMYALGIA
  5. NITROSTAT [Concomitant]
     Dosage: 0.4 MG, AS NEEDED
  6. PROGESTERONE [Concomitant]
     Dosage: 100 MG, DAILY (1/D)
  7. ZANTAC [Concomitant]
     Dosage: 150 MG, DAILY (1/D)
  8. FLEXERIL [Concomitant]
     Dosage: 10 MG, DAILY (1/D)
  9. GLUCOPHAGE [Concomitant]
     Dosage: 1 G, 2/D
  10. LASIX [Concomitant]
     Dosage: 40 MG, 3/D
  11. QUINAPRIL [Concomitant]
     Dosage: 10 MG, DAILY (1/D)
  12. NORVASC [Concomitant]
     Dosage: 10 MG, DAILY (1/D)
  13. SINGULAIR [Concomitant]
     Dosage: 10 MG, DAILY (1/D)
  14. POTASSIUM CHLORIDE [Concomitant]
     Dosage: 10 MEQ, 3/D
  15. LIPITOR [Concomitant]
     Dosage: 10 MG, DAILY (1/D)
  16. ALDACTONE [Concomitant]
  17. IBUPROFEN TABLETS [Concomitant]
     Dosage: 800 MG, 4/D

REACTIONS (12)
  - ARTERIOSCLEROSIS [None]
  - BLOOD CREATININE INCREASED [None]
  - BLOOD GLUCOSE DECREASED [None]
  - BLOOD GLUCOSE INCREASED [None]
  - DRUG INEFFECTIVE [None]
  - FIBROMYALGIA [None]
  - GOUT [None]
  - MUSCULAR WEAKNESS [None]
  - PAIN IN EXTREMITY [None]
  - RENAL DISORDER [None]
  - RENAL FAILURE [None]
  - URINE OUTPUT DECREASED [None]
